FAERS Safety Report 14695089 (Version 4)
Quarter: 2019Q1

REPORT INFORMATION
  Report Type: Spontaneous
  Country: US (occurrence: US)
  Receive Date: 20180329
  Receipt Date: 20190117
  Transmission Date: 20190417
  Serious: Yes (Hospitalization)
  Sender: FDA-Public Use
  Company Number: US-JNJFOC-20180331454

PATIENT
  Age: 14 Year
  Sex: Male
  Weight: 38.1 kg

DRUGS (5)
  1. IRON [Concomitant]
     Active Substance: IRON
     Indication: ANAEMIA
     Route: 065
     Dates: start: 201703
  2. VITAMIN D3 [Concomitant]
     Active Substance: CHOLECALCIFEROL
     Route: 065
     Dates: start: 201703
  3. REMICADE [Suspect]
     Active Substance: INFLIXIMAB
     Indication: CROHN^S DISEASE
     Route: 042
     Dates: start: 20180118
  4. REMICADE [Suspect]
     Active Substance: INFLIXIMAB
     Indication: CROHN^S DISEASE
     Dosage: 5 MG/KG
     Route: 042
     Dates: start: 201703, end: 2017
  5. PROTONIX [Concomitant]
     Active Substance: PANTOPRAZOLE SODIUM
     Indication: GASTROOESOPHAGEAL REFLUX DISEASE
     Route: 065
     Dates: start: 201703, end: 2017

REACTIONS (7)
  - Drug effect decreased [Unknown]
  - Crohn^s disease [Not Recovered/Not Resolved]
  - Skin discolouration [Unknown]
  - Product use issue [Unknown]
  - Off label use [Unknown]
  - Lymphadenopathy [Recovering/Resolving]
  - Drug level below therapeutic [Unknown]

NARRATIVE: CASE EVENT DATE: 201711
